FAERS Safety Report 16103803 (Version 1)
Quarter: 2019Q1

REPORT INFORMATION
  Report Type: Spontaneous
  Country: US (occurrence: US)
  Receive Date: 20190322
  Receipt Date: 20190322
  Transmission Date: 20190418
  Serious: Yes (Hospitalization, Other)
  Sender: FDA-Public Use
  Company Number: US-SA-2019SA073718

PATIENT
  Sex: Female
  Weight: 57.2 kg

DRUGS (1)
  1. FABRAZYME [Suspect]
     Active Substance: AGALSIDASE BETA
     Indication: FABRY^S DISEASE
     Dosage: 0.961 MG/KG, QOW
     Route: 041
     Dates: start: 20190301

REACTIONS (3)
  - Oesophageal ulcer [Unknown]
  - Abdominal pain upper [Unknown]
  - Renal transplant [Unknown]

NARRATIVE: CASE EVENT DATE: 20190306
